FAERS Safety Report 4308866-0 (Version None)
Quarter: 2004Q1

REPORT INFORMATION
  Report Type: 
  Country: None (occurrence: None)
  Receive Date: 20040227
  Receipt Date: 20040216
  Transmission Date: 20041129
  Serious: Yes (Hospitalization)
  Sender: FDA-Public Use
  Company Number: K200400213

PATIENT
  Age: 72 Year
  Sex: Male

DRUGS (9)
  1. ALTACE [Suspect]
     Indication: HYPERTENSION
     Dosage: 5 MG, QD, ORAL
     Route: 048
     Dates: start: 20010101
  2. HUMINSULIN BASAL (NPH) INSULIN HUMAN INJECTION, ISOPHANE ) SOLUTION, 2 [Suspect]
     Indication: DIABETES MELLITUS NON-INSULIN-DEPENDENT
     Dosage: 22 IU, QD, SUBCUTANEOUS
     Route: 058
     Dates: start: 20000101
  3. INSUMAN COMB 25 (INSULIN HUMAN ) SOLUTION, 26IU [Suspect]
     Indication: DIABETES MELLITUS NON-INSULIN-DEPENDENT
     Dosage: 26 IU, QD, SUBCUTANEOUS
     Route: 058
     Dates: start: 20000101
  4. METOHEXAL (METOPROLOL TARTRATE) [Suspect]
     Indication: HYPERTENSION
     Dosage: 100 MG, QD, ORAL
     Route: 048
     Dates: start: 20000101
  5. CYNT (MOXONIDINE) [Concomitant]
  6. FALITHROM (PHENPROCOUMON) [Concomitant]
  7. FUROSEMIDE [Concomitant]
  8. ISDN ^STADA^ (ISOSORBIDE DINITRATE) [Concomitant]
  9. PRAVASTATIN SODIUM [Concomitant]

REACTIONS (3)
  - COMA [None]
  - HYPERHIDROSIS [None]
  - SHOCK HYPOGLYCAEMIC [None]
